FAERS Safety Report 4831878-5 (Version None)
Quarter: 2005Q4

REPORT INFORMATION
  Report Type: 
  Country: None (occurrence: None)
  Receive Date: 20051118
  Receipt Date: 20051019
  Transmission Date: 20060501
  Serious: Yes (Other)
  Sender: FDA-Public Use
  Company Number: ES-ROCHE-421637

PATIENT
  Age: 46 Year
  Sex: Female
  Weight: 59 kg

DRUGS (1)
  1. PEGASYS [Suspect]
     Dosage: FORMULATION REPORTED AS 180 MCG PREFILLED SYRINGE.
     Route: 058
     Dates: start: 20050527

REACTIONS (1)
  - FACIAL PALSY [None]
